FAERS Safety Report 6583672-5 (Version None)
Quarter: 2010Q1

REPORT INFORMATION
  Report Type: 
  Country: None (occurrence: None)
  Receive Date: 20100213
  Receipt Date: 20100213
  Transmission Date: 20100710
  Serious: Yes (Death)
  Sender: FDA-Public Use
  Company Number: None

PATIENT
  Sex: Male
  Weight: 104 kg

DRUGS (3)
  1. SUBOXONE [Suspect]
     Indication: CARDIAC ARREST
     Dosage: 4MG SL X 1
     Route: 060
     Dates: start: 20100204
  2. LYRICA [Concomitant]
  3. LIBRIUM [Concomitant]

REACTIONS (4)
  - LETHARGY [None]
  - MALAISE [None]
  - RESPIRATORY ARREST [None]
  - UNRESPONSIVE TO STIMULI [None]
